FAERS Safety Report 15200305 (Version 1)
Quarter: 2018Q3

REPORT INFORMATION
  Report Type: Spontaneous
  Country: RO (occurrence: RO)
  Receive Date: 20180726
  Receipt Date: 20180726
  Transmission Date: 20181010
  Serious: Yes (Hospitalization, Other)
  Sender: FDA-Public Use
  Company Number: RO-LUPIN PHARMACEUTICALS INC.-2018-03620

PATIENT
  Age: 5 Year
  Sex: Female
  Weight: 27 kg

DRUGS (3)
  1. LAMOTRIGINE. [Suspect]
     Active Substance: LAMOTRIGINE
     Indication: EPILEPSY
     Dosage: 25 MG, BID (WEEK 1 ? 2X25 MG/DAY)
     Route: 065
  2. LAMOTRIGINE. [Interacting]
     Active Substance: LAMOTRIGINE
     Dosage: 50 MG, BID (WEEK 3 ? 2X50 MG/DAY)
     Route: 065
  3. DEPAKINE                           /00228501/ [Interacting]
     Active Substance: VALPROIC ACID
     Indication: EPILEPSY
     Dosage: 600 MG, QD
     Route: 065

REACTIONS (3)
  - Stevens-Johnson syndrome [Recovered/Resolved]
  - Drug interaction [Unknown]
  - Drug ineffective [Unknown]
